FAERS Safety Report 7581692-5 (Version None)
Quarter: 2011Q2

REPORT INFORMATION
  Report Type: 
  Country: None (occurrence: None)
  Receive Date: 20110629
  Receipt Date: 20110627
  Transmission Date: 20111010
  Serious: Yes (Other)
  Sender: FDA-Public Use
  Company Number: NL-PFIZER INC-2011142140

PATIENT
  Sex: Male

DRUGS (1)
  1. LYRICA [Suspect]
     Indication: ANXIETY DISORDER
     Dosage: UNK

REACTIONS (4)
  - MENTAL IMPAIRMENT [None]
  - CONFUSIONAL STATE [None]
  - DEPRESSION [None]
  - ANXIETY [None]
